FAERS Safety Report 8432663-8 (Version None)
Quarter: 2012Q2

REPORT INFORMATION
  Report Type: 
  Country: None (occurrence: None)
  Receive Date: 20120323
  Receipt Date: 20110712
  Transmission Date: 20120825
  Serious: Yes (Hospitalization)
  Sender: FDA-Public Use
  Company Number: 163-21880-11060472

PATIENT
  Age: 81 Year
  Sex: Male

DRUGS (10)
  1. MINOXIDIL [Concomitant]
  2. PROTONIX (PANTOPRAZOLE) (UNKNOWN) [Concomitant]
  3. RENAGEL (SEVELAMER HYDROCHLORIDE) (UNKNOWN) [Concomitant]
  4. LEVOTHYROXINE SODIUM [Concomitant]
  5. AREDIA [Concomitant]
  6. COUMADIN [Concomitant]
  7. REVLIMID [Suspect]
     Indication: MULTIPLE MYELOMA
     Dosage: 5 MG, 1 IN 1 D, PO
     Route: 048
     Dates: start: 20100727, end: 20110521
  8. METOPROLOL TARTRATE [Concomitant]
  9. CLONIDINE [Concomitant]
  10. FOLIC ACID (FOLIC ACID) (UNKNOWN) [Concomitant]

REACTIONS (1)
  - VENOUS THROMBOSIS [None]
